FAERS Safety Report 7897094-8 (Version None)
Quarter: 2011Q4

REPORT INFORMATION
  Report Type: 
  Country: None (occurrence: None)
  Receive Date: 20111107
  Receipt Date: 20111027
  Transmission Date: 20120403
  Serious: Yes (Death, Life-Threatening, Hospitalization, Other)
  Sender: FDA-Public Use
  Company Number: JP-GENZYME-THYM-1002030

PATIENT
  Sex: Male
  Weight: 65 kg

DRUGS (316)
  1. THYMOGLOBULIN [Suspect]
     Indication: ACUTE GRAFT VERSUS HOST DISEASE
     Dosage: 70 MG, QD
     Route: 042
     Dates: start: 20091008, end: 20091008
  2. TACROLIMUS [Concomitant]
     Dosage: UNK
     Dates: start: 20100105, end: 20100216
  3. TACROLIMUS [Concomitant]
     Dosage: UNK
     Dates: start: 20100108, end: 20100216
  4. CHLORPHENIRAMINE MALEATE [Concomitant]
     Indication: PRODUCT USED FOR UNKNOWN INDICATION
     Dosage: UNK
     Dates: start: 20091008, end: 20091008
  5. CHLORPHENIRAMINE MALEATE [Concomitant]
     Dosage: UNK
     Dates: start: 20091102, end: 20091102
  6. CHLORPHENIRAMINE MALEATE [Concomitant]
     Dosage: UNK
     Dates: start: 20100202, end: 20100202
  7. CHLORPHENIRAMINE MALEATE [Concomitant]
     Dosage: UNK
     Dates: start: 20100209, end: 20100209
  8. AMPHOTERICIN B [Concomitant]
     Dosage: UNK
     Dates: start: 20091011, end: 20091011
  9. AMPHOTERICIN B [Concomitant]
     Dosage: UNK
     Dates: start: 20091013, end: 20091013
  10. MEROPENEM [Concomitant]
     Indication: PRODUCT USED FOR UNKNOWN INDICATION
     Dosage: UNK
     Dates: start: 20091015, end: 20091030
  11. MEROPENEM [Concomitant]
     Dosage: UNK
     Dates: start: 20091230, end: 20100118
  12. HYDROCORTISONE SODIUM SUCCINATE [Concomitant]
     Dosage: UNK
     Dates: start: 20091129, end: 20091129
  13. HYDROCORTISONE SODIUM SUCCINATE [Concomitant]
     Dosage: UNK
     Dates: start: 20100110, end: 20100110
  14. HYDROCORTISONE SODIUM SUCCINATE [Concomitant]
     Dosage: UNK
     Dates: start: 20100118, end: 20100118
  15. HYDROCORTISONE SODIUM SUCCINATE [Concomitant]
     Dosage: UNK
     Dates: start: 20100120, end: 20100120
  16. HYDROCORTISONE SODIUM SUCCINATE [Concomitant]
     Dosage: UNK
     Dates: start: 20100218, end: 20100220
  17. HYDROCORTISONE SODIUM SUCCINATE [Concomitant]
     Dosage: UNK
     Dates: start: 20100323, end: 20100324
  18. HYDROCORTISONE SODIUM SUCCINATE [Concomitant]
     Dosage: UNK
     Dates: start: 20100328, end: 20100328
  19. IMMUNOGLOBULIN HUMAN NORMAL [Concomitant]
     Dosage: UNK
     Dates: start: 20091111, end: 20091111
  20. FUROSEMIDE [Concomitant]
     Dosage: UNK
     Dates: start: 20091011, end: 20100319
  21. ALBUMIN (HUMAN) [Concomitant]
     Dosage: UNK
     Dates: start: 20091028, end: 20091029
  22. INSULIN [Concomitant]
     Dosage: UNK
     Dates: start: 20100319, end: 20100331
  23. INSULIN [Concomitant]
     Dosage: UNK
  24. MICAFUNGIN SODIUM [Concomitant]
     Dosage: UNK
     Dates: start: 20100217, end: 20100303
  25. MICAFUNGIN SODIUM [Concomitant]
     Dosage: UNK
     Dates: start: 20100313, end: 20100314
  26. HEPARIN [Concomitant]
     Dosage: UNK
     Dates: start: 20100310, end: 20100313
  27. HEPARIN [Concomitant]
     Dosage: UNK
     Dates: start: 20100323, end: 20100323
  28. LENOGRASTIM [Concomitant]
     Indication: NEUTROPHIL COUNT DECREASED
     Dosage: UNK
     Dates: start: 20100128, end: 20100208
  29. LENOGRASTIM [Concomitant]
     Dosage: UNK
     Dates: start: 20100210, end: 20100211
  30. LENOGRASTIM [Concomitant]
     Dosage: UNK
     Dates: start: 20100222, end: 20100222
  31. CARBAZOCHROME SODIUM SULFONATE [Concomitant]
     Indication: HAEMORRHAGIC DIATHESIS
     Dosage: UNK
     Dates: start: 20100203, end: 20100331
  32. FERRIC CHLORIDE [Concomitant]
     Indication: PRODUCT USED FOR UNKNOWN INDICATION
     Dosage: UNK
     Dates: start: 20100319, end: 20100331
  33. HALOPERIDOL [Concomitant]
     Dosage: UNK
     Dates: start: 20100327, end: 20100327
  34. ACETAMINOPHEN [Concomitant]
     Dosage: UNK
     Dates: start: 20091104, end: 20091104
  35. BACTICORT [Concomitant]
     Dosage: UNK
     Dates: start: 20091023, end: 20091023
  36. BACTICORT [Concomitant]
     Dosage: UNK
     Dates: start: 20100316, end: 20100317
  37. AZULENE [Concomitant]
     Dosage: UNK
     Dates: start: 20091023, end: 20091023
  38. AZULENE [Concomitant]
     Dosage: UNK
     Dates: start: 20091028, end: 20091028
  39. OXYCODONE HYDROCHLORIDE [Concomitant]
     Dosage: UNK
     Dates: start: 20091014, end: 20091117
  40. OXYCODONE HYDROCHLORIDE [Concomitant]
     Dosage: UNK
     Dates: start: 20100107, end: 20100116
  41. LOXOPROFEN SODIUM [Concomitant]
     Dosage: UNK
     Dates: start: 20100102, end: 20100111
  42. TEPRENONE [Concomitant]
     Indication: PRODUCT USED FOR UNKNOWN INDICATION
     Dosage: UNK
     Dates: start: 20091015, end: 20091024
  43. SODIUM GUALENATE [Concomitant]
     Dosage: UNK
     Dates: start: 20091103, end: 20091103
  44. ITRACONAZOLE [Concomitant]
     Dosage: UNK
     Dates: start: 20091226, end: 20100305
  45. ITRACONAZOLE [Concomitant]
     Dosage: UNK
     Dates: start: 20100315, end: 20100328
  46. GLYCERIN [Concomitant]
     Indication: CONSTIPATION
     Dosage: UNK
     Dates: start: 20100107, end: 20100107
  47. SODIUM PICOSULFATE [Concomitant]
     Indication: CONSTIPATION
     Dosage: UNK
     Dates: start: 20100109, end: 20100109
  48. SODIUM PICOSULFATE [Concomitant]
     Dosage: UNK
     Dates: start: 20100206, end: 20100206
  49. SODIUM PICOSULFATE [Concomitant]
     Dosage: UNK
     Dates: start: 20100222, end: 20100222
  50. BISACODYL [Concomitant]
     Indication: CONSTIPATION
     Dosage: UNK
     Dates: start: 20100113, end: 20100122
  51. LORAZEPAM [Concomitant]
     Indication: ANXIETY
     Dosage: UNK
     Dates: start: 20100119, end: 20100128
  52. TRAFERMIN [Concomitant]
     Dosage: UNK
     Dates: start: 20100215, end: 20100215
  53. TACROLIMUS [Concomitant]
     Dosage: UNK
     Dates: start: 20091008, end: 20091128
  54. CHLORPHENIRAMINE MALEATE [Concomitant]
     Dosage: UNK
     Dates: start: 20091025, end: 20091025
  55. CHLORPHENIRAMINE MALEATE [Concomitant]
     Dosage: UNK
     Dates: start: 20100113, end: 20100113
  56. AMPHOTERICIN B [Concomitant]
     Indication: FUNGAL INFECTION
     Dosage: UNK
     Dates: start: 20091009, end: 20091009
  57. MEROPENEM [Concomitant]
     Dosage: UNK
     Dates: start: 20100125, end: 20100128
  58. HYDROCORTISONE SODIUM SUCCINATE [Concomitant]
     Dosage: UNK
     Dates: start: 20091028, end: 20091028
  59. HYDROCORTISONE SODIUM SUCCINATE [Concomitant]
     Dosage: UNK
     Dates: start: 20091102, end: 20091102
  60. HYDROCORTISONE SODIUM SUCCINATE [Concomitant]
     Dosage: UNK
     Dates: start: 20100108, end: 20100108
  61. HYDROCORTISONE SODIUM SUCCINATE [Concomitant]
     Dosage: UNK
     Dates: start: 20100113, end: 20100113
  62. HYDROCORTISONE SODIUM SUCCINATE [Concomitant]
     Dosage: UNK
     Dates: start: 20100321, end: 20100321
  63. IMMUNOGLOBULIN HUMAN NORMAL [Concomitant]
     Dosage: UNK
     Dates: start: 20091030, end: 20091030
  64. FUROSEMIDE [Concomitant]
     Dosage: UNK
     Dates: start: 20091031, end: 20091031
  65. ALBUMIN (HUMAN) [Concomitant]
     Indication: PRODUCT USED FOR UNKNOWN INDICATION
     Dosage: UNK
     Dates: start: 20091017, end: 20091019
  66. ALBUMIN (HUMAN) [Concomitant]
     Dosage: UNK
     Dates: start: 20091105, end: 20091107
  67. HEPARIN [Concomitant]
     Dosage: UNK
     Dates: start: 20091125, end: 20091128
  68. HEPARIN [Concomitant]
     Dosage: UNK
     Dates: start: 20091130, end: 20091226
  69. HEPARIN [Concomitant]
     Dosage: UNK
     Dates: start: 20091230, end: 20100114
  70. HEPARIN [Concomitant]
     Dosage: UNK
     Dates: start: 20100129, end: 20100202
  71. HEPARIN [Concomitant]
     Dosage: UNK
     Dates: start: 20100210, end: 20100210
  72. HEPARIN [Concomitant]
     Dosage: UNK
     Dates: start: 20100215, end: 20100215
  73. METOCLOPRAMIDE [Concomitant]
     Indication: NAUSEA
     Dosage: UNK
     Dates: start: 20100117, end: 20100216
  74. CLINDAMYCIN PHOSPHATE [Concomitant]
     Dosage: UNK
     Dates: start: 20100325, end: 20100331
  75. MINOCYCLINE HYDROCHLORIDE [Concomitant]
     Indication: PRODUCT USED FOR UNKNOWN INDICATION
     Dosage: UNK
     Dates: start: 20100219, end: 20100310
  76. CEFEPIME HYDROCHLORIDE [Concomitant]
     Indication: PRODUCT USED FOR UNKNOWN INDICATION
     Dosage: UNK
     Dates: start: 20100219, end: 20100310
  77. HYDROXYZINE HYDROCHLORIDE [Concomitant]
     Dosage: UNK
     Dates: start: 20100321, end: 20100321
  78. FLURBIPROFEN [Concomitant]
     Dosage: UNK
     Dates: start: 20100328, end: 20100328
  79. MORPHINE HCL ELIXIR [Concomitant]
     Indication: SEDATIVE THERAPY
     Dosage: UNK
     Dates: start: 20100326, end: 20100326
  80. HEPARIN [Concomitant]
     Dosage: UNK
     Dates: start: 20091118, end: 20091118
  81. HEPARIN [Concomitant]
     Dosage: UNK
     Dates: start: 20100309, end: 20100309
  82. HYDROPHILIC OINTMENT [Concomitant]
     Dosage: UNK
     Dates: start: 20100309, end: 20100309
  83. HYDROPHILIC OINTMENT [Concomitant]
     Dosage: UNK
     Dates: start: 20091015, end: 20091015
  84. WHITE PETROLEUM [Concomitant]
     Dosage: UNK
     Dates: start: 20100125, end: 20100125
  85. WHITE PETROLEUM [Concomitant]
     Dosage: UNK
     Dates: start: 20100129, end: 20100129
  86. AZULENE [Concomitant]
     Dosage: UNK
     Dates: start: 20091108, end: 20091108
  87. OXYCODONE HYDROCHLORIDE [Concomitant]
     Dosage: UNK
     Dates: start: 20100106, end: 20100119
  88. PROCHLORPERAZINE MALEATE [Concomitant]
     Indication: ANTIEMETIC SUPPORTIVE CARE
     Dosage: UNK
     Dates: start: 20091014, end: 20091027
  89. NIFEDIPINE [Concomitant]
     Dosage: UNK
     Dates: start: 20100220, end: 20100301
  90. OFLOXACIN [Concomitant]
     Indication: INFECTION PROPHYLAXIS
     Dosage: UNK
     Dates: start: 20091021, end: 20091021
  91. POVIDONE IODINE [Concomitant]
     Dosage: UNK
     Dates: start: 20100201, end: 20100201
  92. DIFLORASONE DIACETATE [Concomitant]
     Indication: GRAFT VERSUS HOST DISEASE
     Dosage: UNK
     Dates: start: 20091031, end: 20091102
  93. AMLODIPINE [Concomitant]
     Dosage: UNK
     Dates: start: 20091115, end: 20100312
  94. CANDESARTAN CILEXETIL [Concomitant]
     Indication: HYPERTENSION
     Dosage: UNK
     Dates: start: 20091127, end: 20091204
  95. SODIUM PICOSULFATE [Concomitant]
     Dosage: UNK
     Dates: start: 20100120, end: 20100120
  96. SODIUM PICOSULFATE [Concomitant]
     Dosage: UNK
     Dates: start: 20100308, end: 20100308
  97. BROTIZOLAM [Concomitant]
     Indication: INSOMNIA
     Dosage: UNK
     Dates: start: 20100113, end: 20100122
  98. GENTAMICIN SULFATE [Concomitant]
     Dosage: UNK
     Dates: start: 20100325, end: 20100325
  99. ALCLOMETASONE DIPROPIONATE [Concomitant]
     Indication: ECZEMA
     Dosage: UNK
     Dates: start: 20100316, end: 20100316
  100. TRICHLORMETHIAZIDE [Concomitant]
     Indication: PRODUCT USED FOR UNKNOWN INDICATION
     Dosage: UNK
     Dates: start: 20100325, end: 20100329
  101. TACROLIMUS [Concomitant]
     Indication: GRAFT VERSUS HOST DISEASE
     Dosage: UNK
     Dates: start: 20091129, end: 20100103
  102. CHLORPHENIRAMINE MALEATE [Concomitant]
     Dosage: UNK
     Dates: start: 20091028, end: 20091028
  103. CHLORPHENIRAMINE MALEATE [Concomitant]
     Dosage: UNK
     Dates: start: 20091031, end: 20091031
  104. CHLORPHENIRAMINE MALEATE [Concomitant]
     Dosage: UNK
     Dates: start: 20091121, end: 20091121
  105. CHLORPHENIRAMINE MALEATE [Concomitant]
     Dosage: UNK
     Dates: start: 20091129, end: 20091129
  106. UNASYN [Concomitant]
     Dosage: UNK
     Dates: start: 20100128, end: 20100201
  107. HYDROCORTISONE SODIUM SUCCINATE [Concomitant]
     Indication: PRODUCT USED FOR UNKNOWN INDICATION
     Dosage: UNK
     Dates: start: 20091015, end: 20091015
  108. HYDROCORTISONE SODIUM SUCCINATE [Concomitant]
     Dosage: UNK
     Dates: start: 20091119, end: 20091119
  109. HYDROCORTISONE SODIUM SUCCINATE [Concomitant]
     Dosage: UNK
     Dates: start: 20091123, end: 20091123
  110. HYDROCORTISONE SODIUM SUCCINATE [Concomitant]
     Dosage: UNK
     Dates: start: 20100126, end: 20100128
  111. HYDROCORTISONE SODIUM SUCCINATE [Concomitant]
     Dosage: UNK
     Dates: start: 20100130, end: 20100130
  112. FUROSEMIDE [Concomitant]
     Dosage: UNK
     Dates: start: 20091105, end: 20091107
  113. HEPARIN [Concomitant]
     Dosage: UNK
     Dates: start: 20100321, end: 20100321
  114. PANTHENOL [Concomitant]
     Indication: CONSTIPATION PROPHYLAXIS
     Dosage: UNK
     Dates: start: 20100117, end: 20100216
  115. METOCLOPRAMIDE [Concomitant]
     Dosage: UNK
     Dates: start: 20100219, end: 20100331
  116. LENOGRASTIM [Concomitant]
     Dosage: UNK
     Dates: start: 20100315, end: 20100315
  117. HYDROXYZINE HYDROCHLORIDE [Concomitant]
     Dosage: UNK
     Dates: start: 20100305, end: 20100308
  118. CARPERITIDE [Concomitant]
     Indication: PRODUCT USED FOR UNKNOWN INDICATION
     Dosage: UNK
     Dates: start: 20100316, end: 20100329
  119. ZINC SULFATE [Concomitant]
     Indication: PRODUCT USED FOR UNKNOWN INDICATION
     Dosage: UNK
     Dates: start: 20100319, end: 20100331
  120. BACTICORT [Concomitant]
     Indication: PRODUCT USED FOR UNKNOWN INDICATION
     Dosage: UNK
     Dates: start: 20091013, end: 20091016
  121. BACTICORT [Concomitant]
     Dosage: UNK
     Dates: start: 20091028, end: 20091029
  122. AZULENE [Concomitant]
     Dosage: UNK
     Dates: start: 20091031, end: 20091031
  123. LIDOCAINE HCL [Concomitant]
     Dosage: UNK
     Dates: start: 20091028, end: 20091028
  124. LIDOCAINE HCL [Concomitant]
     Dosage: UNK
     Dates: start: 20091108, end: 20091108
  125. MECOBALAMIN [Concomitant]
     Indication: PRODUCT USED FOR UNKNOWN INDICATION
     Dosage: UNK
     Dates: start: 20091120, end: 20100319
  126. EPERISONE HYDROCHLORIDE [Concomitant]
     Indication: BACK PAIN
     Dosage: UNK
     Dates: start: 20100106, end: 20100202
  127. TRAFERMIN [Concomitant]
     Dosage: UNK
     Dates: start: 20100226, end: 20100226
  128. TRAFERMIN [Concomitant]
     Dosage: UNK
     Dates: start: 20100312, end: 20100312
  129. CHLORPHENIRAMINE MALEATE [Concomitant]
     Dosage: UNK
     Dates: start: 20091021, end: 20091021
  130. CHLORPHENIRAMINE MALEATE [Concomitant]
     Dosage: UNK
     Dates: start: 20100108, end: 20100108
  131. CHLORPHENIRAMINE MALEATE [Concomitant]
     Dosage: UNK
     Dates: start: 20100110, end: 20100110
  132. HYDROCORTISONE SODIUM SUCCINATE [Concomitant]
     Dosage: UNK
     Dates: start: 20091031, end: 20091031
  133. HYDROCORTISONE SODIUM SUCCINATE [Concomitant]
     Dosage: UNK
     Dates: start: 20091108, end: 20091108
  134. HYDROCORTISONE SODIUM SUCCINATE [Concomitant]
     Dosage: UNK
     Dates: start: 20091213, end: 20091213
  135. HYDROCORTISONE SODIUM SUCCINATE [Concomitant]
     Dosage: UNK
     Dates: start: 20100115, end: 20100115
  136. HYDROCORTISONE SODIUM SUCCINATE [Concomitant]
     Dosage: UNK
     Dates: start: 20100310, end: 20100311
  137. IMMUNOGLOBULIN HUMAN NORMAL [Concomitant]
     Dosage: UNK
     Dates: start: 20100227, end: 20100228
  138. IMMUNOGLOBULIN HUMAN NORMAL [Concomitant]
     Dosage: UNK
     Dates: start: 20091128, end: 20091129
  139. FUROSEMIDE [Concomitant]
     Dosage: UNK
     Dates: start: 20091022, end: 20091022
  140. MICAFUNGIN SODIUM [Concomitant]
     Indication: PROPHYLAXIS
     Dosage: UNK
     Dates: start: 20091111, end: 20091212
  141. HEPARIN [Concomitant]
     Dosage: UNK
     Dates: start: 20100226, end: 20100226
  142. HEPARIN [Concomitant]
     Dosage: UNK
     Dates: start: 20100303, end: 20100305
  143. HEPARIN [Concomitant]
     Dosage: UNK
     Dates: start: 20100317, end: 20100317
  144. HEPARIN [Concomitant]
     Dosage: UNK
     Dates: start: 20100330, end: 20100330
  145. LENOGRASTIM [Concomitant]
     Dosage: UNK
     Dates: start: 20100227, end: 20100227
  146. LENOGRASTIM [Concomitant]
     Dosage: UNK
     Dates: start: 20100303, end: 20100303
  147. LENOGRASTIM [Concomitant]
     Dosage: UNK
     Dates: start: 20100325, end: 20100325
  148. DORIPENEM HYDRATE [Concomitant]
     Indication: PRODUCT USED FOR UNKNOWN INDICATION
     Dosage: UNK
     Dates: start: 20100216, end: 20100219
  149. HYDROXYZINE HYDROCHLORIDE [Concomitant]
     Dosage: UNK
     Dates: start: 20100323, end: 20100323
  150. HEPARIN [Concomitant]
     Indication: PRODUCT USED FOR UNKNOWN INDICATION
     Dosage: UNK
  151. HEPARIN [Concomitant]
     Dosage: UNK
     Dates: start: 20091129, end: 20091129
  152. HEPARIN [Concomitant]
     Dosage: UNK
     Dates: start: 20100312, end: 20100312
  153. ACETAMINOPHEN [Concomitant]
     Indication: PREMEDICATION
     Dosage: UNK
     Dates: start: 20091008, end: 20091008
  154. WHITE PETROLEUM [Concomitant]
     Indication: PRODUCT USED FOR UNKNOWN INDICATION
     Dosage: UNK
     Dates: start: 20091012, end: 20091013
  155. AZULENE [Concomitant]
     Dosage: UNK
     Dates: start: 20091020, end: 20091020
  156. AZULENE [Concomitant]
     Dosage: UNK
     Dates: start: 20091101, end: 20091101
  157. PROCHLORPERAZINE MALEATE [Concomitant]
     Dosage: UNK
     Dates: start: 20100106, end: 20100119
  158. TEPRENONE [Concomitant]
     Dosage: UNK
     Dates: start: 20100102, end: 20100111
  159. NIFEDIPINE [Concomitant]
     Dosage: UNK
     Dates: start: 20100311, end: 20100331
  160. CANDESARTAN CILEXETIL [Concomitant]
     Dosage: UNK
     Dates: start: 20100218, end: 20100226
  161. ITRACONAZOLE [Concomitant]
     Indication: PRODUCT USED FOR UNKNOWN INDICATION
     Dosage: UNK
     Dates: start: 20091213, end: 20091224
  162. SODIUM PICOSULFATE [Concomitant]
     Dosage: UNK
     Dates: start: 20100211, end: 20100211
  163. SODIUM PICOSULFATE [Concomitant]
     Dosage: UNK
     Dates: start: 20100328, end: 20100328
  164. BROTIZOLAM [Concomitant]
     Dosage: UNK
     Dates: start: 20100219, end: 20100305
  165. TACROLIMUS [Concomitant]
     Dosage: UNK
     Dates: start: 20100218, end: 20100303
  166. CHLORPHENIRAMINE MALEATE [Concomitant]
     Dosage: UNK
     Dates: start: 20091106, end: 20091106
  167. CHLORPHENIRAMINE MALEATE [Concomitant]
     Dosage: UNK
     Dates: start: 20091114, end: 20091114
  168. CHLORPHENIRAMINE MALEATE [Concomitant]
     Dosage: UNK
     Dates: start: 20100122, end: 20100122
  169. CHLORPHENIRAMINE MALEATE [Concomitant]
     Dosage: UNK
     Dates: start: 20100126, end: 20100126
  170. CHLORPHENIRAMINE MALEATE [Concomitant]
     Dosage: UNK
     Dates: start: 20100319, end: 20100319
  171. MEROPENEM [Concomitant]
     Dosage: UNK
     Dates: start: 20091111, end: 20091124
  172. MEROPENEM [Concomitant]
     Dosage: UNK
     Dates: start: 20091214, end: 20091224
  173. HYDROCORTISONE SODIUM SUCCINATE [Concomitant]
     Dosage: UNK
     Dates: start: 20091114, end: 20091114
  174. HYDROCORTISONE SODIUM SUCCINATE [Concomitant]
     Dosage: UNK
     Dates: start: 20091121, end: 20091121
  175. HYDROCORTISONE SODIUM SUCCINATE [Concomitant]
     Dosage: UNK
     Dates: start: 20100122, end: 20100122
  176. HYDROCORTISONE SODIUM SUCCINATE [Concomitant]
     Dosage: UNK
     Dates: start: 20100202, end: 20100205
  177. HYDROCORTISONE SODIUM SUCCINATE [Concomitant]
     Dosage: UNK
     Dates: start: 20100222, end: 20100301
  178. HYDROCORTISONE SODIUM SUCCINATE [Concomitant]
     Dosage: UNK
     Dates: start: 20100303, end: 20100308
  179. HYDROCORTISONE SODIUM SUCCINATE [Concomitant]
     Dosage: UNK
     Dates: start: 20100319, end: 20100319
  180. HYDROCORTISONE SODIUM SUCCINATE [Concomitant]
     Dosage: UNK
     Dates: start: 20100330, end: 20100330
  181. IMMUNOGLOBULIN HUMAN NORMAL [Concomitant]
     Indication: PRODUCT USED FOR UNKNOWN INDICATION
     Dosage: UNK
     Dates: start: 20091016, end: 20091016
  182. IMMUNOGLOBULIN HUMAN NORMAL [Concomitant]
     Dosage: UNK
     Dates: start: 20091022, end: 20091022
  183. FUROSEMIDE [Concomitant]
     Indication: PRODUCT USED FOR UNKNOWN INDICATION
     Dosage: UNK
     Dates: start: 20091016, end: 20091019
  184. FUROSEMIDE [Concomitant]
     Dosage: UNK
     Dates: start: 20091028, end: 20091028
  185. FUROSEMIDE [Concomitant]
     Dosage: UNK
     Dates: start: 20091113, end: 20091113
  186. ALBUMIN (HUMAN) [Concomitant]
     Dosage: UNK
     Dates: start: 20100205, end: 20100205
  187. HEPARIN [Concomitant]
     Dosage: UNK
     Dates: start: 20100207, end: 20100207
  188. HEPARIN [Concomitant]
     Dosage: UNK
     Dates: start: 20100212, end: 20100212
  189. HEPARIN [Concomitant]
     Dosage: UNK
     Dates: start: 20100325, end: 20100327
  190. TRANEXAMIC ACID [Concomitant]
     Indication: HAEMORRHAGIC DIATHESIS
     Dosage: UNK
     Dates: start: 20100203, end: 20100318
  191. HYDROXYZINE HYDROCHLORIDE [Concomitant]
     Dosage: UNK
     Dates: start: 20100310, end: 20100311
  192. HYDROXYZINE HYDROCHLORIDE [Concomitant]
     Dosage: UNK
     Dates: start: 20100313, end: 20100314
  193. HYDROXYZINE HYDROCHLORIDE [Concomitant]
     Dosage: UNK
     Dates: start: 20100316, end: 20100316
  194. METHYLPREDNISOLONE SODIUM SUCCINATE [Concomitant]
     Indication: GRAFT VERSUS HOST DISEASE
     Dosage: UNK
     Dates: start: 20100316, end: 20100331
  195. FLURBIPROFEN [Concomitant]
     Indication: ANTIPYRESIS
     Dosage: UNK
     Dates: start: 20100324, end: 20100324
  196. MORPHINE HCL ELIXIR [Concomitant]
     Indication: ANALGESIC THERAPY
     Dosage: UNK
     Dates: start: 20100328, end: 20100328
  197. FAMOTIDINE [Concomitant]
     Indication: PRODUCT USED FOR UNKNOWN INDICATION
     Dosage: UNK
     Dates: start: 20100328, end: 20100331
  198. ISONIAZID [Concomitant]
     Indication: ANTIBIOTIC PROPHYLAXIS
     Dosage: UNK
     Dates: start: 20091008, end: 20100319
  199. ACYCLOVIR [Concomitant]
     Indication: ANTIVIRAL PROPHYLAXIS
     Dosage: UNK
     Dates: start: 20091008, end: 20100331
  200. HEPARIN [Concomitant]
     Dosage: UNK
     Dates: start: 20100222, end: 20100222
  201. HYDROPHILIC OINTMENT [Concomitant]
     Dosage: UNK
     Dates: start: 20091012, end: 20091013
  202. AZULENE [Concomitant]
     Dosage: UNK
     Dates: start: 20100125, end: 20100125
  203. LIDOCAINE HCL [Concomitant]
     Dosage: UNK
     Dates: start: 20091020, end: 20091020
  204. OXYCODONE HYDROCHLORIDE [Concomitant]
     Indication: ANALGESIC THERAPY
     Dosage: UNK
     Dates: start: 20091014, end: 20091030
  205. OXYCODONE HYDROCHLORIDE [Concomitant]
     Dosage: UNK
     Dates: start: 20091031, end: 20091113
  206. NIFEDIPINE [Concomitant]
     Indication: HYPERTENSION
     Dosage: UNK
     Dates: start: 20091018, end: 20091018
  207. NIFEDIPINE [Concomitant]
     Dosage: UNK
     Dates: start: 20100304, end: 20100313
  208. INDOMETHACIN [Concomitant]
     Indication: BACK PAIN
     Dosage: UNK
     Dates: start: 20100105, end: 20100105
  209. CELECOXIB [Concomitant]
     Indication: BACK PAIN
     Dosage: UNK
     Dates: start: 20100118, end: 20100305
  210. TRAFERMIN [Concomitant]
     Indication: PRODUCT USED FOR UNKNOWN INDICATION
     Dosage: UNK
     Dates: start: 20100208, end: 20100208
  211. KETOCONAZOLE [Concomitant]
     Indication: PRODUCT USED FOR UNKNOWN INDICATION
     Dosage: UNK
     Dates: start: 20100226, end: 20100226
  212. LANOCONAZOLE [Concomitant]
     Indication: PRODUCT USED FOR UNKNOWN INDICATION
     Dosage: UNK
     Dates: start: 20100316, end: 20100316
  213. TIMOLOL MALEATE [Concomitant]
     Indication: CONJUNCTIVITIS
     Dosage: UNK
     Dates: start: 20100319, end: 20100319
  214. THYMOGLOBULIN [Suspect]
     Dosage: 165 MG, QD
     Route: 042
     Dates: start: 20091104, end: 20091104
  215. TACROLIMUS [Concomitant]
     Dosage: UNK
     Dates: start: 20100218, end: 20100307
  216. CHLORPHENIRAMINE MALEATE [Concomitant]
     Dosage: UNK
     Dates: start: 20091119, end: 20091119
  217. CHLORPHENIRAMINE MALEATE [Concomitant]
     Dosage: UNK
     Dates: start: 20091206, end: 20091206
  218. CHLORPHENIRAMINE MALEATE [Concomitant]
     Dosage: UNK
     Dates: start: 20100115, end: 20100115
  219. HYDROCORTISONE SODIUM SUCCINATE [Concomitant]
     Dosage: UNK
     Dates: start: 20091021, end: 20091021
  220. HYDROCORTISONE SODIUM SUCCINATE [Concomitant]
     Dosage: UNK
     Dates: start: 20091111, end: 20091112
  221. HYDROCORTISONE SODIUM SUCCINATE [Concomitant]
     Dosage: UNK
     Dates: start: 20100209, end: 20100216
  222. FUROSEMIDE [Concomitant]
     Dosage: UNK
     Dates: start: 20100305, end: 20100306
  223. ALBUMIN (HUMAN) [Concomitant]
     Dosage: UNK
     Dates: start: 20100323, end: 20100324
  224. HEPARIN [Concomitant]
     Indication: PROPHYLAXIS
     Dosage: UNK
     Dates: start: 20091121, end: 20091121
  225. HEPARIN [Concomitant]
     Dosage: UNK
     Dates: start: 20100330, end: 20100330
  226. HEPARIN [Concomitant]
     Dosage: UNK
     Dates: start: 20091008, end: 20091201
  227. CEFTAZIDIME [Concomitant]
     Indication: PRODUCT USED FOR UNKNOWN INDICATION
     Dosage: UNK
     Dates: start: 20100201, end: 20100216
  228. HYDROXYZINE HYDROCHLORIDE [Concomitant]
     Dosage: UNK
     Dates: start: 20100319, end: 20100319
  229. HYDROXYZINE HYDROCHLORIDE [Concomitant]
     Dosage: UNK
     Dates: start: 20100330, end: 20100330
  230. CARPERITIDE [Concomitant]
     Dosage: UNK
     Dates: start: 20100331, end: 20100331
  231. METHYLPREDNISOLONE SODIUM SUCCINATE [Concomitant]
     Dosage: UNK
     Dates: start: 20091205, end: 20100319
  232. NYSTATIN [Concomitant]
     Indication: PRODUCT USED FOR UNKNOWN INDICATION
     Dosage: UNK
     Dates: start: 20091008, end: 20100331
  233. BACTICORT [Concomitant]
     Dosage: UNK
     Dates: start: 20091020, end: 20091020
  234. AZULENE [Concomitant]
     Dosage: UNK
     Dates: start: 20100304, end: 20100304
  235. LIDOCAINE HCL [Concomitant]
     Dosage: UNK
     Dates: start: 20091023, end: 20091023
  236. TEPRENONE [Concomitant]
     Dosage: UNK
     Dates: start: 20100218, end: 20100227
  237. AMLODIPINE [Concomitant]
     Indication: HYPERTENSION
     Dosage: UNK
     Dates: start: 20091109, end: 20091120
  238. MAGNESIUM [Concomitant]
     Dosage: UNK
     Dates: start: 20100206, end: 20100331
  239. LORAZEPAM [Concomitant]
     Dosage: UNK
     Dates: start: 20100317, end: 20100326
  240. RABEPRAZOLE SODIUM [Concomitant]
     Indication: GASTRIC ULCER
     Dosage: UNK
     Dates: start: 20100308, end: 20100331
  241. OXIDISED CELLULOSE [Concomitant]
     Dosage: UNK
     Dates: start: 20100326, end: 20100326
  242. LEVOFLOXACIN [Concomitant]
     Indication: INFECTION PROPHYLAXIS
     Dosage: UNK
     Dates: start: 20100319, end: 20100319
  243. CORTICOSTEROIDS [Concomitant]
     Indication: GRAFT VERSUS HOST DISEASE
     Dosage: UNK
     Dates: start: 20090806
  244. TACROLIMUS [Concomitant]
     Indication: ACUTE GRAFT VERSUS HOST DISEASE
     Dosage: UNK
     Dates: start: 20090823
  245. TACROLIMUS [Concomitant]
     Dosage: UNK
     Dates: start: 20100308, end: 20100328
  246. TACROLIMUS [Concomitant]
     Dosage: UNK
     Dates: start: 20100328, end: 20100331
  247. CHLORPHENIRAMINE MALEATE [Concomitant]
     Dosage: UNK
     Dates: start: 20091015, end: 20091015
  248. CHLORPHENIRAMINE MALEATE [Concomitant]
     Dosage: UNK
     Dates: start: 20091104, end: 20091104
  249. CHLORPHENIRAMINE MALEATE [Concomitant]
     Dosage: UNK
     Dates: start: 20091111, end: 20091111
  250. CHLORPHENIRAMINE MALEATE [Concomitant]
     Dosage: UNK
     Dates: start: 20091213, end: 20091213
  251. CHLORPHENIRAMINE MALEATE [Concomitant]
     Dosage: UNK
     Dates: start: 20100118, end: 20100118
  252. CHLORPHENIRAMINE MALEATE [Concomitant]
     Dosage: UNK
     Dates: start: 20100120, end: 20100120
  253. CHLORPHENIRAMINE MALEATE [Concomitant]
     Dosage: UNK
     Dates: start: 20100130, end: 20100130
  254. CHLORPHENIRAMINE MALEATE [Concomitant]
     Dosage: UNK
     Dates: start: 20100218, end: 20100218
  255. CHLORPHENIRAMINE MALEATE [Concomitant]
     Dosage: UNK
     Dates: start: 20100222, end: 20100222
  256. UNASYN [Concomitant]
     Indication: PRODUCT USED FOR UNKNOWN INDICATION
     Dosage: UNK
     Dates: start: 20091014, end: 20091030
  257. HYDROCORTISONE SODIUM SUCCINATE [Concomitant]
     Dosage: UNK
     Dates: start: 20091106, end: 20091106
  258. HYDROCORTISONE SODIUM SUCCINATE [Concomitant]
     Dosage: UNK
     Dates: start: 20091204, end: 20091204
  259. HYDROCORTISONE SODIUM SUCCINATE [Concomitant]
     Dosage: UNK
     Dates: start: 20091206, end: 20091206
  260. HYDROCORTISONE SODIUM SUCCINATE [Concomitant]
     Dosage: UNK
     Dates: start: 20100313, end: 20100316
  261. FUROSEMIDE [Concomitant]
     Dosage: UNK
     Dates: start: 20100102, end: 20100102
  262. HEPARIN [Concomitant]
     Dosage: UNK
     Dates: start: 20100116, end: 20100127
  263. HEPARIN [Concomitant]
     Dosage: UNK
     Dates: start: 20100205, end: 20100205
  264. PANTHENOL [Concomitant]
     Dosage: UNK
     Dates: start: 20100219, end: 20100331
  265. CLINDAMYCIN PHOSPHATE [Concomitant]
     Indication: PRODUCT USED FOR UNKNOWN INDICATION
     Dosage: UNK
     Dates: start: 20100201, end: 20100219
  266. CEFEPIME HYDROCHLORIDE [Concomitant]
     Dosage: UNK
     Dates: start: 20100315, end: 20100331
  267. HALOPERIDOL [Concomitant]
     Indication: SEDATIVE THERAPY
     Dosage: UNK
     Dates: start: 20100325, end: 20100325
  268. URSODIOL [Concomitant]
     Indication: PROPHYLAXIS
     Dosage: UNK
     Dates: start: 20091008, end: 20100331
  269. HEPARIN [Concomitant]
     Dosage: UNK
     Dates: start: 20091217, end: 20091217
  270. POTASSIUM [Concomitant]
     Indication: HYPOKALAEMIA
     Dosage: UNK
     Dates: start: 20091011, end: 20091127
  271. AZULENE [Concomitant]
     Dosage: UNK
     Dates: start: 20091104, end: 20091104
  272. AZULENE [Concomitant]
     Dosage: UNK
     Dates: start: 20100316, end: 20100316
  273. LIDOCAINE HCL [Concomitant]
     Dosage: UNK
     Dates: start: 20091104, end: 20091104
  274. LIDOCAINE HCL [Concomitant]
     Dosage: UNK
     Dates: start: 20091104, end: 20091113
  275. LOXOPROFEN SODIUM [Concomitant]
     Indication: ANTIPYRESIS
     Dosage: UNK
     Dates: start: 20091015, end: 20091024
  276. NIFEDIPINE [Concomitant]
     Dosage: UNK
     Dates: start: 20091102, end: 20091117
  277. SODIUM GUALENATE [Concomitant]
     Indication: INFECTION PROPHYLAXIS
     Dosage: UNK
     Dates: start: 20091020, end: 20091020
  278. POVIDONE IODINE [Concomitant]
     Indication: INFECTION PROPHYLAXIS
     Dosage: UNK
     Dates: start: 20091030, end: 20091030
  279. CANDESARTAN CILEXETIL [Concomitant]
     Dosage: UNK
     Dates: start: 20100217, end: 20100312
  280. GLYCERIN [Concomitant]
     Dosage: UNK
     Dates: start: 20100122, end: 20100122
  281. GLYCERIN [Concomitant]
     Dosage: UNK
     Dates: start: 20100120, end: 20100120
  282. SODIUM PICOSULFATE [Concomitant]
     Dosage: UNK
     Dates: start: 20100201, end: 20100201
  283. BROTIZOLAM [Concomitant]
     Dosage: UNK
     Dates: start: 20100208, end: 20100217
  284. OXIDISED CELLULOSE [Concomitant]
     Indication: PRODUCT USED FOR UNKNOWN INDICATION
     Dosage: UNK
     Dates: start: 20100316, end: 20100316
  285. TACROLIMUS [Concomitant]
     Dosage: UNK
     Dates: start: 20100312, end: 20100317
  286. TACROLIMUS [Concomitant]
     Dosage: UNK
     Dates: start: 20100319, end: 20100323
  287. CHLORPHENIRAMINE MALEATE [Concomitant]
     Dosage: UNK
     Dates: start: 20091108, end: 20091108
  288. CHLORPHENIRAMINE MALEATE [Concomitant]
     Dosage: UNK
     Dates: start: 20091204, end: 20091204
  289. HYDROCORTISONE SODIUM SUCCINATE [Concomitant]
     Dosage: UNK
     Dates: start: 20091025, end: 20091025
  290. FUROSEMIDE [Concomitant]
     Dosage: UNK
     Dates: start: 20100312, end: 20100331
  291. ALBUMIN (HUMAN) [Concomitant]
     Dosage: UNK
     Dates: start: 20100306, end: 20100306
  292. ALBUMIN (HUMAN) [Concomitant]
     Dosage: UNK
     Dates: start: 20100312, end: 20100313
  293. INSULIN [Concomitant]
     Indication: HYPERGLYCAEMIA
     Dosage: UNK
     Dates: start: 20091105, end: 20091127
  294. LACTATED RINGER'S [Concomitant]
     Indication: PRODUCT USED FOR UNKNOWN INDICATION
     Dosage: UNK
     Dates: start: 20091210, end: 20091226
  295. LENOGRASTIM [Concomitant]
     Dosage: UNK
     Dates: start: 20100213, end: 20100214
  296. LENOGRASTIM [Concomitant]
     Dosage: UNK
     Dates: start: 20100307, end: 20100307
  297. HYDROXYZINE HYDROCHLORIDE [Concomitant]
     Indication: SLEEP DISORDER
     Dosage: UNK
     Dates: start: 20100226, end: 20100301
  298. HYDROXYZINE HYDROCHLORIDE [Concomitant]
     Dosage: UNK
     Dates: start: 20100303, end: 20100303
  299. MORPHINE HCL ELIXIR [Concomitant]
     Dosage: UNK
     Dates: start: 20100330, end: 20100331
  300. HEPARIN [Concomitant]
     Dosage: UNK
     Dates: start: 20091202, end: 20091202
  301. HEPARIN [Concomitant]
     Dosage: UNK
     Dates: start: 20100325, end: 20100325
  302. HYDROPHILIC OINTMENT [Concomitant]
     Indication: PRODUCT USED FOR UNKNOWN INDICATION
     Dosage: UNK
     Dates: start: 20091010, end: 20091010
  303. AZULENE [Concomitant]
     Indication: PRODUCT USED FOR UNKNOWN INDICATION
     Dosage: UNK
     Dates: start: 20091013, end: 20091016
  304. LIDOCAINE HCL [Concomitant]
     Indication: PRODUCT USED FOR UNKNOWN INDICATION
     Dosage: UNK
     Dates: start: 20091014, end: 20091016
  305. OXYCODONE HYDROCHLORIDE [Concomitant]
     Dosage: UNK
     Dates: start: 20100115, end: 20100121
  306. LOXOPROFEN SODIUM [Concomitant]
     Dosage: UNK
     Dates: start: 20100218, end: 20100227
  307. POVIDONE IODINE [Concomitant]
     Dosage: UNK
     Dates: start: 20091202, end: 20091202
  308. DEXAMETHASONE [Concomitant]
     Indication: STOMATITIS
     Dosage: UNK
     Dates: start: 20091127, end: 20091127
  309. MAGNESIUM [Concomitant]
     Indication: CONSTIPATION
     Dosage: UNK
     Dates: start: 20100107, end: 20100127
  310. MAGNESIUM [Concomitant]
     Dosage: UNK
     Dates: start: 20100129, end: 20100204
  311. SODIUM PICOSULFATE [Concomitant]
     Dosage: UNK
     Dates: start: 20100117, end: 20100117
  312. GENTAMICIN SULFATE [Concomitant]
     Indication: PRODUCT USED FOR UNKNOWN INDICATION
     Dosage: UNK
     Dates: start: 20100206, end: 20100206
  313. TRAFERMIN [Concomitant]
     Dosage: UNK
     Dates: start: 20100325, end: 20100325
  314. DIPHENHYDRAMINE HCL [Concomitant]
     Indication: ECZEMA
     Dosage: UNK
     Dates: start: 20100312, end: 20100312
  315. LANOCONAZOLE [Concomitant]
     Dosage: UNK
     Dates: start: 20100325, end: 20100325
  316. LEVOFLOXACIN [Concomitant]
     Indication: CONJUNCTIVITIS
     Dosage: UNK
     Dates: start: 20091104, end: 20091113

REACTIONS (6)
  - CELLULITIS [None]
  - CELLULITIS STAPHYLOCOCCAL [None]
  - FUNGAL INFECTION [None]
  - RENAL FAILURE [None]
  - FEBRILE NEUTROPENIA [None]
  - STAPHYLOCOCCAL SEPSIS [None]
